FAERS Safety Report 15227671 (Version 2)
Quarter: 2018Q3

REPORT INFORMATION
  Report Type: Spontaneous
  Country: FR (occurrence: FR)
  Receive Date: 20180801
  Receipt Date: 20180802
  Transmission Date: 20181010
  Serious: Yes (Hospitalization)
  Sender: FDA-Public Use
  Company Number: FR-PFIZER INC-2018300884

PATIENT
  Age: 32 Year
  Sex: Female

DRUGS (4)
  1. CODEINE [Suspect]
     Active Substance: CODEINE
     Dosage: UNK
     Route: 048
  2. CANNABIS [Suspect]
     Active Substance: CANNABIS SATIVA SUBSP. INDICA TOP
     Dosage: UNK
     Route: 055
  3. ALPRAZOLAM. [Suspect]
     Active Substance: ALPRAZOLAM
     Dosage: 6 DF, 1X/DAY
     Route: 048
  4. DECONTRACTYL /00140701/ [Suspect]
     Active Substance: MEPHENESIN
     Dosage: 6 TABLETS IN THE EVENING
     Route: 048

REACTIONS (3)
  - Drug abuser [Not Recovered/Not Resolved]
  - Drug abuse [Recovered/Resolved]
  - Intentional product misuse [Not Recovered/Not Resolved]
